FAERS Safety Report 23958758 (Version 2)
Quarter: 2024Q2

REPORT INFORMATION
  Report Type: Spontaneous
  Country: US (occurrence: US)
  Receive Date: 20240610
  Receipt Date: 20240624
  Transmission Date: 20240716
  Serious: Yes (Hospitalization)
  Sender: FDA-Public Use
  Company Number: US-TEVA-VS-3202937

PATIENT
  Age: 58 Year
  Sex: Male

DRUGS (3)
  1. DILTIAZEM [Suspect]
     Active Substance: DILTIAZEM
     Indication: Hypertrophic cardiomyopathy
     Route: 065
  2. METOPROLOL SUCCINATE [Suspect]
     Active Substance: METOPROLOL SUCCINATE
     Indication: Hypertrophic cardiomyopathy
     Route: 065
  3. DISOPYRAMIDE [Suspect]
     Active Substance: DISOPYRAMIDE
     Indication: Hypertrophic cardiomyopathy
     Route: 065

REACTIONS (3)
  - Bradycardia [Unknown]
  - Diarrhoea [Unknown]
  - Drug ineffective [Unknown]
